FAERS Safety Report 4542196-7 (Version None)
Quarter: 2004Q4

REPORT INFORMATION
  Report Type: 
  Country: None (occurrence: None)
  Receive Date: 20041227
  Receipt Date: 20041216
  Transmission Date: 20050328
  Serious: Yes (Hospitalization)
  Sender: FDA-Public Use
  Company Number: 163-20785-04120285

PATIENT
  Age: 70 Year
  Sex: Male

DRUGS (7)
  1. THALOMID [Suspect]
     Indication: MULTIPLE MYELOMA
     Dosage: 100 MG, DAILY, ORAL
     Route: 048
     Dates: start: 20040319, end: 20041021
  2. INSULIN [Concomitant]
  3. NITROGLYCERIN [Concomitant]
  4. TOPROL (METOPROLOL SUCCINATE) [Concomitant]
  5. CALCIUM (CALCIUM) [Concomitant]
  6. BUMEX [Concomitant]
  7. NEPHROVITE (NEPHRO-VITE RX) [Concomitant]

REACTIONS (4)
  - APHAGIA [None]
  - FACIAL PALSY [None]
  - NEUROPATHY PERIPHERAL [None]
  - SPEECH DISORDER [None]
